FAERS Safety Report 7948391-9 (Version None)
Quarter: 2011Q4

REPORT INFORMATION
  Report Type: 
  Country: None (occurrence: None)
  Receive Date: 20111130
  Receipt Date: 20111025
  Transmission Date: 20120403
  Serious: No
  Sender: FDA-Public Use
  Company Number: US-B.I. PHARMACEUTICALS,INC./RIDGEFIELD-2011-BP-26969BP

PATIENT
  Sex: Female

DRUGS (5)
  1. QUINAPRIL [Concomitant]
     Indication: HYPERTENSION
  2. MIRAPEX [Suspect]
     Indication: RESTLESS LEGS SYNDROME
     Dosage: 0.25 MG
     Route: 048
  3. ZETIA [Concomitant]
     Indication: BLOOD CHOLESTEROL INCREASED
  4. NOVOLOG [Concomitant]
     Indication: DIABETES MELLITUS
  5. LITHIUM [Concomitant]
     Indication: BIPOLAR DISORDER

REACTIONS (2)
  - ABDOMINAL PAIN [None]
  - VOMITING [None]
